FAERS Safety Report 5388836-4 (Version None)
Quarter: 2007Q3

REPORT INFORMATION
  Report Type: 
  Country: None (occurrence: None)
  Receive Date: 20070716
  Receipt Date: 20070703
  Transmission Date: 20080115
  Serious: Yes (Hospitalization)
  Sender: FDA-Public Use
  Company Number: US-SHR-US-2007-018689

PATIENT
  Age: 83 Year
  Sex: Female
  Weight: 63.492 kg

DRUGS (9)
  1. BETASERON [Suspect]
     Indication: SECONDARY PROGRESSIVE MULTIPLE SCLEROSIS
     Dosage: 8 MIU, EVERY 2D
     Route: 058
     Dates: start: 20050511, end: 20070510
  2. BETASERON [Suspect]
     Dosage: 8 MIU, EVERY 2D
     Route: 058
     Dates: start: 20070513
  3. TIZANIDINE HCL [Concomitant]
  4. ACTONEL [Concomitant]
  5. SYNTHROID [Concomitant]
  6. OXYTROL [Concomitant]
  7. VICODIN [Concomitant]
  8. XALATAN [Concomitant]
  9. COSOPT [Concomitant]

REACTIONS (6)
  - ASTHENIA [None]
  - BLOOD POTASSIUM INCREASED [None]
  - HEART RATE DECREASED [None]
  - HYPOTENSION [None]
  - LETHARGY [None]
  - VOMITING [None]
